FAERS Safety Report 9559671 (Version 1)
Quarter: 2013Q3

REPORT INFORMATION
  Report Type: Spontaneous
  Country: US (occurrence: None)
  Receive Date: 20130924
  Receipt Date: 20130924
  Transmission Date: 20140515
  Serious: Yes (Other)
  Sender: FDA-Public Use
  Company Number: AUR-APL-2013-07862

PATIENT
  Age: 58 Year
  Sex: Male
  Weight: 122 kg

DRUGS (4)
  1. SIMVASTATIN [Suspect]
     Indication: BLOOD CHOLESTEROL INCREASED
     Dosage: 1 D
  2. LIPITOR [Suspect]
     Indication: BLOOD CHOLESTEROL INCREASED
     Dosage: 1 D
     Route: 048
     Dates: start: 2008
  3. TRIBENZOR [Suspect]
     Indication: PRODUCT USED FOR UNKNOWN INDICATION
     Route: 048
  4. CYMBALTA (DULOXETINE HYDROCHLORIDE) [Concomitant]

REACTIONS (5)
  - Neuropathy peripheral [None]
  - Drug interaction [None]
  - Hip arthroplasty [None]
  - Post procedural complication [None]
  - Local swelling [None]
